FAERS Safety Report 9079429 (Version 1)
Quarter: 2013Q1

REPORT INFORMATION
  Report Type: Report from Study
  Country: US (occurrence: US)
  Receive Date: 20130130
  Receipt Date: 20130130
  Transmission Date: 20140127
  Serious: No
  Sender: FDA-Public Use
  Company Number: US-ABBOTT-12P-163-0974083-00

PATIENT
  Age: 61 Year
  Sex: Female

DRUGS (12)
  1. HUMIRA 40 MG/0.8 ML PEN [Suspect]
     Indication: RHEUMATOID ARTHRITIS
     Dates: start: 20120713
  2. SINGULAIR [Concomitant]
     Indication: ASTHMA
  3. ADVAIR [Concomitant]
     Indication: ASTHMA
  4. ALLEGRA [Concomitant]
     Indication: HYPERSENSITIVITY
  5. PLAQUENIL [Concomitant]
     Indication: RHEUMATOID ARTHRITIS
  6. LEVOTHYROXINE [Concomitant]
     Indication: HYPOTHYROIDISM
  7. PROTONIX [Concomitant]
     Indication: GASTRIC ULCER
  8. FOLIC ACID [Concomitant]
     Indication: PRODUCT USED FOR UNKNOWN INDICATION
  9. VITAMINS [Concomitant]
     Indication: PRODUCT USED FOR UNKNOWN INDICATION
  10. VITAMIN D3 [Concomitant]
     Indication: PRODUCT USED FOR UNKNOWN INDICATION
  11. CALTRATE + VITAMIN D + 600 MG + D [Concomitant]
     Indication: PRODUCT USED FOR UNKNOWN INDICATION
  12. PROLIA [Concomitant]
     Indication: OSTEOPOROSIS

REACTIONS (6)
  - Pyrexia [Recovering/Resolving]
  - Injection site pain [Recovering/Resolving]
  - Influenza [Recovering/Resolving]
  - Nasopharyngitis [Recovering/Resolving]
  - Rhinorrhoea [Recovering/Resolving]
  - Incorrect dose administered [Recovering/Resolving]
